FAERS Safety Report 19177829 (Version 1)
Quarter: 2021Q2

REPORT INFORMATION
  Report Type: Spontaneous
  Country: US (occurrence: US)
  Receive Date: 20210426
  Receipt Date: 20210426
  Transmission Date: 20210717
  Serious: Yes (Hospitalization, Other)
  Sender: FDA-Public Use
  Company Number: US-AUROBINDO-AUR-APL-2021-015592

PATIENT
  Age: 58 Year
  Sex: Female

DRUGS (3)
  1. HYDROMORPHONE [Suspect]
     Active Substance: HYDROMORPHONE
     Indication: ABDOMINAL PAIN
     Dosage: UNK
     Route: 065
  2. KETAMINE HYDROCHLORIDE. [Suspect]
     Active Substance: KETAMINE HYDROCHLORIDE
     Indication: ABDOMINAL PAIN
     Dosage: 7 MICROGRAM/KILOGRAM (MINUTE)
     Route: 042
  3. METHADONE [Suspect]
     Active Substance: METHADONE HYDROCHLORIDE
     Indication: BACK PAIN
     Dosage: 130 MILLIGRAM, 3 TIMES A DAY
     Route: 048

REACTIONS (3)
  - Delirium [Recovering/Resolving]
  - Agitation [Unknown]
  - Drug ineffective [Unknown]
